FAERS Safety Report 7288548-6 (Version None)
Quarter: 2011Q1

REPORT INFORMATION
  Report Type: 
  Country: None (occurrence: None)
  Receive Date: 20110211
  Receipt Date: 20110203
  Transmission Date: 20110831
  Serious: Yes (Hospitalization, Other)
  Sender: FDA-Public Use
  Company Number: US-AMGEN-USASP2011006764

PATIENT
  Age: 80 Year
  Sex: Female

DRUGS (3)
  1. ARANESP [Suspect]
     Indication: RENAL FAILURE CHRONIC
     Dates: start: 20070101, end: 20101101
  2. ARANESP [Suspect]
     Dosage: UNK
     Dates: start: 20110202
  3. WHOLE BLOOD [Concomitant]

REACTIONS (13)
  - DYSPNOEA [None]
  - HAEMORRHAGE [None]
  - GASTROSTOMY TUBE INSERTION [None]
  - CARDIAC ARREST [None]
  - MECHANICAL VENTILATION [None]
  - CARBON DIOXIDE ABNORMAL [None]
  - TRANSFUSION [None]
  - RENAL FAILURE [None]
  - HAEMATOMA [None]
  - SKIN GRAFT [None]
  - THROMBOSIS [None]
  - HOSPITALISATION [None]
  - TRACHEOSTOMY [None]
